FAERS Safety Report 24848766 (Version 2)
Quarter: 2025Q1

REPORT INFORMATION
  Report Type: Spontaneous
  Country: NL (occurrence: NL)
  Receive Date: 20250116
  Receipt Date: 20250213
  Transmission Date: 20250409
  Serious: Yes (Other)
  Sender: CIPLA
  Company Number: NL-LRB-01024301

PATIENT

DRUGS (4)
  1. ESOMEPRAZOLE [Suspect]
     Active Substance: ESOMEPRAZOLE
     Indication: Helicobacter gastritis
     Dosage: 20 MILLIGRAM, BID (DOSAGE FORM: CAPSULE 2 X PER DAY 1 PIECE)
     Route: 048
     Dates: start: 20241211, end: 20250104
  2. METRONIDAZOLE [Suspect]
     Active Substance: METRONIDAZOLE
     Indication: Helicobacter gastritis
     Dosage: 250 MILLIGRAM, TID (EVERY 8 HOURS) (3 X PER DAY 1 PIECE, FOR 7 DAYS)
     Route: 048
     Dates: start: 20241211
  3. AMOXICILLIN [Suspect]
     Active Substance: AMOXICILLIN
     Indication: Helicobacter gastritis
     Dosage: 500 MILLIGRAM, BID (EVERY 12 HOURS) (2 X PER DAY 1 PIECE TOGETHER WITH METRONIDAZOLE)
     Route: 048
     Dates: start: 20241211
  4. LEVOTHYROXINE [Concomitant]
     Active Substance: LEVOTHYROXINE
     Indication: Product used for unknown indication
     Dosage: 100 MILLIGRAM, QD (THYROID MEDICATION)
     Route: 065

REACTIONS (4)
  - Depersonalisation/derealisation disorder [Not Recovered/Not Resolved]
  - Balance disorder [Recovering/Resolving]
  - Somnolence [Not Recovered/Not Resolved]
  - Dizziness [Recovering/Resolving]
